FAERS Safety Report 8584637-4 (Version None)
Quarter: 2012Q3

REPORT INFORMATION
  Report Type: 
  Country: None (occurrence: None)
  Receive Date: 20120810
  Receipt Date: 20120731
  Transmission Date: 20120928
  Serious: Yes (Hospitalization)
  Sender: FDA-Public Use
  Company Number: FI-CELGENEUS-055-50794-12073162

PATIENT
  Sex: Male

DRUGS (6)
  1. BISOPROLOL FUMARATE [Concomitant]
     Route: 048
  2. LOSATRIX [Concomitant]
     Route: 048
  3. VIDAZA [Suspect]
     Indication: MYELODYSPLASTIC SYNDROME
     Route: 065
     Dates: start: 20101227, end: 20120323
  4. ELIGARD [Concomitant]
     Route: 058
     Dates: start: 20101101
  5. PANTOPRAZOLE [Concomitant]
     Route: 048
  6. SIMVASTATIN [Concomitant]
     Route: 048

REACTIONS (3)
  - LUNG INFILTRATION [None]
  - C-REACTIVE PROTEIN INCREASED [None]
  - PYREXIA [None]
